FAERS Safety Report 16059696 (Version 1)
Quarter: 2019Q1

REPORT INFORMATION
  Report Type: Spontaneous
  Country: US (occurrence: US)
  Receive Date: 20190311
  Receipt Date: 20190311
  Transmission Date: 20190418
  Serious: Yes (Hospitalization, Other)
  Sender: FDA-Public Use
  Company Number: US-ALLERGAN-1908941US

PATIENT
  Sex: Male
  Weight: 12.4 kg

DRUGS (1)
  1. VILAZODONE HCL UNK [Suspect]
     Active Substance: VILAZODONE HYDROCHLORIDE
     Indication: ACCIDENTAL EXPOSURE TO PRODUCT
     Route: 065

REACTIONS (8)
  - Accidental exposure to product by child [Unknown]
  - Urine amphetamine positive [Recovered/Resolved]
  - Mydriasis [Recovered/Resolved]
  - Gait disturbance [Recovered/Resolved]
  - Tremor [Recovered/Resolved]
  - Poisoning [Recovered/Resolved]
  - Tachycardia [Recovered/Resolved]
  - Seizure like phenomena [Recovered/Resolved]
